FAERS Safety Report 11125021 (Version 2)
Quarter: 2015Q2

REPORT INFORMATION
  Report Type: Report from Study
  Country: JP (occurrence: JP)
  Receive Date: 20150520
  Receipt Date: 20150618
  Transmission Date: 20150821
  Serious: Yes (Death, Hospitalization, Other)
  Sender: FDA-Public Use
  Company Number: JP-EISAI MEDICAL RESEARCH-EC-2015-006848

PATIENT
  Age: 52 Year
  Sex: Female
  Weight: 49 kg

DRUGS (5)
  1. HALAVEN [Suspect]
     Active Substance: ERIBULIN MESYLATE
     Indication: BREAST CANCER RECURRENT
     Route: 041
     Dates: start: 20141119, end: 2014
  2. HALAVEN [Suspect]
     Active Substance: ERIBULIN MESYLATE
     Route: 041
     Dates: start: 20141210, end: 20150107
  3. ZOMETA [Concomitant]
     Active Substance: ZOLEDRONIC ACID
  4. LOXOPROFEN SODIUM HYDRATE [Concomitant]
     Active Substance: LOXOPROFEN SODIUM DIHYDRATE
  5. RINDERON V [Concomitant]
     Active Substance: BETAMETHASONE VALERATE

REACTIONS (3)
  - Malignant neoplasm progression [Fatal]
  - Neutropenia [Recovering/Resolving]
  - Leukopenia [Recovering/Resolving]

NARRATIVE: CASE EVENT DATE: 20141126
